FAERS Safety Report 6761470-7 (Version None)
Quarter: 2010Q2

REPORT INFORMATION
  Report Type: 
  Country: None (occurrence: None)
  Receive Date: 20100607
  Receipt Date: 20100527
  Transmission Date: 20101027
  Serious: Yes (Other)
  Sender: FDA-Public Use
  Company Number: LEO-2010-00108(0)

PATIENT
  Age: 27 Year
  Sex: Female
  Weight: 56 kg

DRUGS (7)
  1. INNOHEP [Suspect]
     Indication: THROMBOSIS PROPHYLAXIS
     Dosage: 4500 IU (4500 IU, 1 IN 1 D), SUBCUTANEOUS; 3500 IU (3500 IU, 1 IN 1 D, SUBCUTANEOUS; 7000 IU (2 IN 1
     Route: 058
     Dates: start: 20030205, end: 20030213
  2. INNOHEP [Suspect]
     Indication: THROMBOSIS PROPHYLAXIS
     Dosage: 4500 IU (4500 IU, 1 IN 1 D), SUBCUTANEOUS; 3500 IU (3500 IU, 1 IN 1 D, SUBCUTANEOUS; 7000 IU (2 IN 1
     Route: 058
     Dates: start: 20030213, end: 20030710
  3. INNOHEP [Suspect]
     Indication: THROMBOSIS PROPHYLAXIS
     Dosage: 4500 IU (4500 IU, 1 IN 1 D), SUBCUTANEOUS; 3500 IU (3500 IU, 1 IN 1 D, SUBCUTANEOUS; 7000 IU (2 IN 1
     Route: 058
     Dates: start: 20030710
  4. PROSTAGLANDIN (PROSTAGLANDINS) [Concomitant]
  5. KAPAKE (CODEINE PHOSPHATE PARACETAMOL) (TABLETS) [Concomitant]
  6. SYNTOMETRINE (OXYTOCIN, ERGOMETRINE) [Concomitant]
  7. SYNTOCINON [Concomitant]

REACTIONS (2)
  - DRUG EXPOSURE DURING PREGNANCY [None]
  - POSTPARTUM HAEMORRHAGE [None]
